FAERS Safety Report 17915100 (Version 1)
Quarter: 2020Q2

REPORT INFORMATION
  Report Type: Spontaneous
  Country: US (occurrence: US)
  Receive Date: 20200619
  Receipt Date: 20200619
  Transmission Date: 20200714
  Serious: No
  Sender: FDA-Public Use
  Company Number: NVSC2020US171161

PATIENT
  Age: 60 Year

DRUGS (1)
  1. ENTRESTO [Suspect]
     Active Substance: SACUBITRIL\VALSARTAN
     Indication: CARDIAC FAILURE
     Dosage: 24 MG, Q12H (24/26 MG)
     Route: 048
     Dates: start: 20200101, end: 20200606

REACTIONS (2)
  - Nail disorder [Unknown]
  - Nail injury [Unknown]

NARRATIVE: CASE EVENT DATE: 20200606
